FAERS Safety Report 4443629-7 (Version None)
Quarter: 2004Q3

REPORT INFORMATION
  Report Type: 
  Country: None (occurrence: None)
  Receive Date: 20040908
  Receipt Date: 20031114
  Transmission Date: 20050211
  Serious: Yes (Hospitalization)
  Sender: FDA-Public Use
  Company Number: US-GLAXOSMITHKLINE-A0439820A

PATIENT
  Age: 60 Year
  Sex: Female

DRUGS (7)
  1. PARNATE [Suspect]
     Indication: DEPRESSION
     Dosage: 10MG SEVEN TIMES PER DAY
     Route: 048
     Dates: start: 19781101
  2. UNSPECIFIED MEDICATION [Concomitant]
  3. PREDNISONE [Concomitant]
  4. TYLENOL [Concomitant]
  5. PROTONIX [Concomitant]
  6. MULTIVITAMIN [Concomitant]
  7. CONCURRENT MEDICATIONS [Concomitant]

REACTIONS (6)
  - ACCIDENTAL OVERDOSE [None]
  - ECZEMA [None]
  - ENTEROCOLITIS HAEMORRHAGIC [None]
  - HEADACHE [None]
  - INCONTINENCE [None]
  - WEIGHT INCREASED [None]
